FAERS Safety Report 12444794 (Version 3)
Quarter: 2016Q3

REPORT INFORMATION
  Report Type: Spontaneous
  Country: US (occurrence: US)
  Receive Date: 20160607
  Receipt Date: 20160926
  Transmission Date: 20161109
  Serious: Yes (Other)
  Sender: FDA-Public Use
  Company Number: US-ALEXION PHARMACEUTICALS INC-A201603959

PATIENT
  Age: 21 Year
  Sex: Female
  Weight: 118.82 kg

DRUGS (2)
  1. SOLIRIS [Suspect]
     Active Substance: ECULIZUMAB
     Indication: PAROXYSMAL NOCTURNAL HAEMOGLOBINURIA
     Dosage: 900 MG, EVERY 12 DAYS
     Route: 042
  2. SOLIRIS [Suspect]
     Active Substance: ECULIZUMAB
     Dosage: 1200 MG, Q2W
     Route: 042

REACTIONS (5)
  - Exposure during pregnancy [Recovered/Resolved]
  - Incorrect dose administered [Unknown]
  - Blood lactate dehydrogenase increased [Unknown]
  - Neutropenia [Unknown]
  - Haemolysis [Unknown]

NARRATIVE: CASE EVENT DATE: 20160413
